FAERS Safety Report 7050459-9 (Version None)
Quarter: 2010Q4

REPORT INFORMATION
  Report Type: 
  Country: None (occurrence: None)
  Receive Date: 20101018
  Receipt Date: 20101013
  Transmission Date: 20110411
  Serious: Yes (Life-Threatening, Hospitalization)
  Sender: FDA-Public Use
  Company Number: JP-ROCHE-579314

PATIENT
  Sex: Male
  Weight: 49 kg

DRUGS (15)
  1. TOCILIZUMAB [Suspect]
     Indication: RHEUMATOID ARTHRITIS
     Route: 041
     Dates: start: 20080717, end: 20080717
  2. RHEUMATREX [Suspect]
     Indication: RHEUMATOID ARTHRITIS
     Route: 048
     Dates: start: 20070516
  3. PROGRAF [Suspect]
     Indication: RHEUMATOID ARTHRITIS
     Route: 048
     Dates: start: 20080124, end: 20080816
  4. BREDININ [Suspect]
     Indication: RHEUMATOID ARTHRITIS
     Route: 048
     Dates: start: 19960201, end: 20080816
  5. PREDONINE [Concomitant]
     Route: 048
     Dates: start: 19961114
  6. ALFAROL [Concomitant]
     Route: 048
  7. BENET [Concomitant]
     Route: 048
  8. AMOBAN [Concomitant]
     Route: 048
  9. DEPAS [Concomitant]
     Dosage: FORM: PERORAL AGENT
     Route: 048
  10. VOLTAREN [Concomitant]
     Dosage: FORM: SUSTAINED RELEASE CAPSULE
     Route: 048
  11. ZYLORIC [Concomitant]
     Route: 048
  12. GASCON [Concomitant]
     Dosage: FORM: PERORAL AGENT
     Route: 048
  13. FERO-GRADUMET [Concomitant]
     Route: 048
  14. TAKEPRON [Concomitant]
     Route: 048
  15. ASPARA-CA [Concomitant]
     Route: 048

REACTIONS (3)
  - LUNG ABSCESS [None]
  - PNEUMONIA [None]
  - RASH GENERALISED [None]
